FAERS Safety Report 8228322-7 (Version None)
Quarter: 2012Q1

REPORT INFORMATION
  Report Type: 
  Country: None (occurrence: None)
  Receive Date: 20120322
  Receipt Date: 20111003
  Transmission Date: 20120608
  Serious: No
  Sender: FDA-Public Use
  Company Number: US-BRISTOL-MYERS SQUIBB COMPANY-16125882

PATIENT

DRUGS (1)
  1. ERBITUX [Suspect]
     Dosage: 200MG:LOT:10C00197C,EXP:JUNE2013 2(100MG)LOT:09C00624D,EXP:JAN2013-LOT:10C00383C,EXP:AUG2013

REACTIONS (1)
  - INCORRECT STORAGE OF DRUG [None]
